FAERS Safety Report 10596343 (Version 1)
Quarter: 2014Q4

REPORT INFORMATION
  Report Type: Spontaneous
  Country: IT (occurrence: IT)
  Receive Date: 20141120
  Receipt Date: 20141120
  Transmission Date: 20150529
  Serious: Yes (Hospitalization, Other)
  Sender: FDA-Public Use
  Company Number: IT-WATSON-2014-24560

PATIENT
  Age: 56 Year
  Sex: Male

DRUGS (3)
  1. CABERGOLINE (UNKNOWN) [Suspect]
     Active Substance: CABERGOLINE
     Indication: PROLACTIN-PRODUCING PITUITARY TUMOUR
     Dosage: 0.5 MG, DAILY
     Route: 065
  2. BROMOCRIPTINE (UNKNOWN) [Suspect]
     Active Substance: BROMOCRIPTINE
     Dosage: 2.5 MG, TID
     Route: 065
  3. BROMOCRIPTINE (UNKNOWN) [Suspect]
     Active Substance: BROMOCRIPTINE
     Indication: PROLACTIN-PRODUCING PITUITARY TUMOUR
     Dosage: 5 MG, BID
     Route: 065

REACTIONS (23)
  - Venous pressure jugular increased [None]
  - Rales [None]
  - Oedema peripheral [None]
  - Heart sounds abnormal [None]
  - Fibrin D dimer increased [None]
  - Heart rate increased [None]
  - Haemodynamic instability [None]
  - Dilatation ventricular [None]
  - Arteriosclerosis [None]
  - Dyspnoea [None]
  - Pulmonary oedema [None]
  - Respiratory acidosis [None]
  - Pulmonary arterial hypertension [None]
  - Cardiac failure acute [None]
  - Pleural effusion [None]
  - Heart valve calcification [None]
  - Sinus tachycardia [None]
  - C-reactive protein increased [None]
  - Ventricular hypokinesia [None]
  - Mitral valve incompetence [Recovered/Resolved]
  - Orthopnoea [None]
  - Hypercapnia [None]
  - Cardiomegaly [None]
